FAERS Safety Report 20832225 (Version 1)
Quarter: 2022Q2

REPORT INFORMATION
  Report Type: 
  Country: None (occurrence: None)
  Receive Date: 20220516
  Receipt Date: 20220516
  Transmission Date: 20220720
  Serious: No
  Sender: FDA-Public Use
  Company Number: US-ROCHE-1338652

PATIENT
  Weight: 64.86 kg

DRUGS (7)
  1. BEVACIZUMAB [Suspect]
     Active Substance: BEVACIZUMAB
     Dosage: LAST DOSE ADMINISTERED 20/NOV/2013, TOTAL DOSE ADMINISTERED 990 MG
     Dates: start: 20120827
  2. CARBOPLATIN [Suspect]
     Active Substance: CARBOPLATIN
     Dosage: LAST DOSE ADMINISTERED 03/JAN/2013, TOTAL DOSE ADMINISTERED 0 MG, AUC 5
     Dates: start: 20120827
  3. PACLITAXEL [Suspect]
     Active Substance: PACLITAXEL
     Dosage: LAST DOSE ADMINISTERED 03/JAN/2013, TOTAL DOSE ADMINISTERED 0 MG
     Dates: start: 20120827
  4. CYCLOPHOSPHAMIDE [Suspect]
     Active Substance: CYCLOPHOSPHAMIDE
  5. CISPLATIN [Suspect]
     Active Substance: CISPLATIN
  6. CYTOXAN [Suspect]
     Active Substance: CYCLOPHOSPHAMIDE
     Dates: start: 20151214
  7. TOPROL XL [Concomitant]
     Active Substance: METOPROLOL SUCCINATE

REACTIONS (4)
  - Cardiac failure [None]
  - Left ventricular dysfunction [None]
  - Hypertension [None]
  - Second primary malignancy [None]

NARRATIVE: CASE EVENT DATE: 20131121
